FAERS Safety Report 5504938-3 (Version None)
Quarter: 2007Q4

REPORT INFORMATION
  Report Type: 
  Country: None (occurrence: None)
  Receive Date: 20071031
  Receipt Date: 20071017
  Transmission Date: 20080405
  Serious: Yes (Other)
  Sender: FDA-Public Use
  Company Number: 2007BI020238

PATIENT
  Age: 37 Year
  Sex: Female

DRUGS (2)
  1. NATALIZUMAB [Suspect]
     Indication: MULTIPLE SCLEROSIS
     Dosage: IV;300 MG;QM;IV
     Route: 042
     Dates: start: 20050209, end: 20050209
  2. NATALIZUMAB [Suspect]
     Indication: MULTIPLE SCLEROSIS
     Dosage: IV;300 MG;QM;IV
     Route: 042
     Dates: start: 20070615

REACTIONS (4)
  - ACCIDENT [None]
  - BLADDER DISORDER [None]
  - DRUG DOSE OMISSION [None]
  - SURGERY [None]
